FAERS Safety Report 17726915 (Version 2)
Quarter: 2021Q2

REPORT INFORMATION
  Report Type: Spontaneous
  Country: US (occurrence: US)
  Receive Date: 20200430
  Receipt Date: 20210512
  Transmission Date: 20210716
  Serious: Yes (Other)
  Sender: FDA-Public Use
  Company Number: US-SA-2020SA110483

PATIENT
  Sex: Male

DRUGS (1)
  1. ZANTAC 75 [Suspect]
     Active Substance: RANITIDINE HYDROCHLORIDE
     Dosage: UNK
     Route: 065
     Dates: start: 199601, end: 201912

REACTIONS (7)
  - Anxiety [Unknown]
  - Colorectal cancer [Unknown]
  - Anhedonia [Unknown]
  - Pain [Unknown]
  - Metastases to liver [Unknown]
  - Gastrointestinal carcinoma [Unknown]
  - Emotional distress [Unknown]

NARRATIVE: CASE EVENT DATE: 201901
